FAERS Safety Report 8612017-1 (Version None)
Quarter: 2012Q3

REPORT INFORMATION
  Report Type: 
  Country: None (occurrence: None)
  Receive Date: 20120822
  Receipt Date: 20120622
  Transmission Date: 20120928
  Serious: Yes (Other)
  Sender: FDA-Public Use
  Company Number: FR-GLAXOSMITHKLINE-B0823012A

PATIENT
  Sex: Female

DRUGS (1)
  1. ACYCLOVIR [Suspect]
     Indication: HERPES VIRUS INFECTION
     Dosage: 200MG FIVE TIMES PER DAY
     Route: 048
     Dates: start: 20120621

REACTIONS (2)
  - EAR DISCOMFORT [None]
  - DEAFNESS [None]
